FAERS Safety Report 13757246 (Version 1)
Quarter: 2017Q3

REPORT INFORMATION
  Report Type: Spontaneous
  Country: US (occurrence: US)
  Receive Date: 20170715
  Receipt Date: 20170715
  Transmission Date: 20171127
  Serious: Yes (Other)
  Sender: FDA-Public Use
  Company Number: None

PATIENT
  Age: 54 Year
  Sex: Female
  Weight: 111.1 kg

DRUGS (7)
  1. CO Q10-CRANBERRY WITH VITAMIN C [Concomitant]
  2. CITALOPRAM [Concomitant]
     Active Substance: CITALOPRAM HYDROBROMIDE
  3. OSTEO BI FLEX GLUCOSAMINE [Concomitant]
  4. DAILY WOMEN OVER 50 [Concomitant]
  5. MELOXICAM. [Concomitant]
     Active Substance: MELOXICAM
  6. VITAMIN C [Concomitant]
     Active Substance: ASCORBIC ACID
  7. ATORVASTATIN CALCIUM. [Suspect]
     Active Substance: ATORVASTATIN CALCIUM
     Indication: BLOOD CHOLESTEROL INCREASED
     Dosage: ?          OTHER STRENGTH:MG/MG;QUANTITY:30 TABLET(S);?
     Route: 048
     Dates: start: 20161128, end: 20170715

REACTIONS (2)
  - Ear infection [None]
  - Aphonia [None]

NARRATIVE: CASE EVENT DATE: 20161128
